FAERS Safety Report 4508201-9 (Version None)
Quarter: 2004Q4

REPORT INFORMATION
  Report Type: 
  Country: None (occurrence: None)
  Receive Date: 20041123
  Receipt Date: 20031112
  Transmission Date: 20050328
  Serious: No
  Sender: FDA-Public Use
  Company Number: US-GLAXOSMITHKLINE-A0439412A

PATIENT
  Age: 69 Year
  Sex: Female

DRUGS (11)
  1. WELLBUTRIN [Suspect]
     Indication: DEPRESSION
     Dosage: 100MG TWICE PER DAY
     Route: 048
     Dates: start: 20031001, end: 20031208
  2. WELLBUTRIN [Suspect]
     Dosage: 300MG PER DAY
     Route: 048
     Dates: start: 20031001, end: 20040101
  3. KLONOPIN [Suspect]
     Indication: ILL-DEFINED DISORDER
     Route: 065
     Dates: start: 20031001
  4. XANAX [Suspect]
     Indication: ILL-DEFINED DISORDER
     Route: 065
     Dates: start: 20030901, end: 20031001
  5. UNITHROID [Concomitant]
  6. AMBIEN [Concomitant]
  7. SEROQUEL [Concomitant]
  8. THYROID SUPPLEMENT [Concomitant]
  9. CLONOPIN [Concomitant]
  10. REMERON [Concomitant]
  11. ZOCOR [Concomitant]

REACTIONS (8)
  - ANOREXIA [None]
  - BLOOD THYROID STIMULATING HORMONE ABNORMAL [None]
  - DRUG INEFFECTIVE [None]
  - DYSPEPSIA [None]
  - FLATULENCE [None]
  - GASTROOESOPHAGEAL REFLUX DISEASE [None]
  - HEPATIC ENZYME INCREASED [None]
  - WEIGHT DECREASED [None]
